FAERS Safety Report 18574383 (Version 1)
Quarter: 2020Q4

REPORT INFORMATION
  Report Type: Spontaneous
  Country: US (occurrence: US)
  Receive Date: 20201203
  Receipt Date: 20201203
  Transmission Date: 20210114
  Serious: Yes (Death)
  Sender: FDA-Public Use
  Company Number: US-ROCHE-2725983

PATIENT
  Sex: Female

DRUGS (12)
  1. BENZONATATE. [Concomitant]
     Active Substance: BENZONATATE
  2. IOPHEN [Concomitant]
  3. ACTEMRA [Suspect]
     Active Substance: TOCILIZUMAB
  4. CELLCEPT [Suspect]
     Active Substance: MYCOPHENOLATE MOFETIL\MYCOPHENOLATE MOFETIL HYDROCHLORIDE
     Indication: PRODUCT USED FOR UNKNOWN INDICATION
     Route: 065
  5. CALCIUM [Concomitant]
     Active Substance: CALCIUM
  6. MELOXICAM. [Concomitant]
     Active Substance: MELOXICAM
  7. ACTEMRA [Suspect]
     Active Substance: TOCILIZUMAB
  8. NAPROXEN. [Concomitant]
     Active Substance: NAPROXEN
  9. DOXYCYCLINE HYCLATE. [Concomitant]
     Active Substance: DOXYCYCLINE HYCLATE
  10. ASPIRIN. [Concomitant]
     Active Substance: ASPIRIN
  11. ACTEMRA [Suspect]
     Active Substance: TOCILIZUMAB
     Indication: PULMONARY ARTERIAL HYPERTENSION
     Dosage: INJECT 162 MG SUBCUTANEOUSLY EVERY SEVEN DAYS
     Route: 058
     Dates: start: 20180829, end: 20201202
  12. DILTIAZEM HCL [Concomitant]
     Active Substance: DILTIAZEM HYDROCHLORIDE

REACTIONS (3)
  - Death [Fatal]
  - Intentional product use issue [Unknown]
  - Off label use [Unknown]
